FAERS Safety Report 6813323-3 (Version None)
Quarter: 2010Q2

REPORT INFORMATION
  Report Type: 
  Country: None (occurrence: None)
  Receive Date: 20100628
  Receipt Date: 20100614
  Transmission Date: 20101027
  Serious: Yes (Other)
  Sender: FDA-Public Use
  Company Number: ACO_01120_2010

PATIENT
  Age: 52 Year
  Sex: Male
  Weight: 68.0396 kg

DRUGS (1)
  1. AMPYRA [Suspect]
     Indication: GAIT DISTURBANCE
     Dosage: 10 MG BID ORAL
     Route: 048
     Dates: start: 20100501

REACTIONS (2)
  - GLAUCOMA [None]
  - HEADACHE [None]
